FAERS Safety Report 7526046-2 (Version None)
Quarter: 2011Q2

REPORT INFORMATION
  Report Type: 
  Country: None (occurrence: None)
  Receive Date: 20110526
  Receipt Date: 20110509
  Transmission Date: 20111010
  Serious: Yes (Other)
  Sender: FDA-Public Use
  Company Number: 2011AP000950

PATIENT
  Sex: Female

DRUGS (5)
  1. DOMPERIDONE (DOMPERIDONE) [Concomitant]
  2. SUMATRIPTAN (SUMATRIPTAN) [Concomitant]
  3. SUMATRIPTAN SUCCINATE [Concomitant]
  4. RIZATRIPTAN BENZOATE [Concomitant]
  5. TOPIRAMATE [Suspect]
     Indication: PRODUCT USED FOR UNKNOWN INDICATION
     Dosage: 50 MG, PO, BID, PO
     Route: 048
     Dates: start: 20110308, end: 20110414

REACTIONS (3)
  - PARAESTHESIA [None]
  - AMNESIA [None]
  - CONFUSIONAL STATE [None]
